FAERS Safety Report 22622095 (Version 1)
Quarter: 2023Q2

REPORT INFORMATION
  Report Type: Spontaneous
  Country: CO (occurrence: CO)
  Receive Date: 20230620
  Receipt Date: 20230620
  Transmission Date: 20230721
  Serious: Yes (Other)
  Sender: FDA-Public Use
  Company Number: CO-PFIZER INC-PV202300107995

PATIENT
  Age: 45 Year
  Sex: Female

DRUGS (1)
  1. PALBOCICLIB [Suspect]
     Active Substance: PALBOCICLIB
     Dosage: 125 MG (21 DAYS AND REST FOR 7 DAYS)
     Dates: start: 20230529

REACTIONS (2)
  - Abdominal pain upper [Unknown]
  - Gastritis [Unknown]

NARRATIVE: CASE EVENT DATE: 20230606
